FAERS Safety Report 8789154 (Version 1)
Quarter: 2012Q4

REPORT INFORMATION
  Report Type: Spontaneous
  Country: US (occurrence: None)
  Receive Date: 20120907
  Receipt Date: 20120907
  Transmission Date: 20130627
  Serious: Yes (Hospitalization)
  Sender: FDA-Public Use
  Company Number: None

PATIENT
  Age: 85 Year
  Sex: Male
  Weight: 89.2 kg

DRUGS (2)
  1. GLIPIZIDE [Suspect]
     Indication: DIABETES MELLITUS
     Dosage: Beginning date of use given ~10/05/2012 is greater than end date of use
     Route: 048
     Dates: end: 20120819
  2. SULFAMETHOXAZOLE/TRIMETHOPRIM [Suspect]
     Dosage: MG PO
     Route: 048
     Dates: start: 20120809, end: 20120819

REACTIONS (4)
  - Urinary tract infection [None]
  - Hypoglycaemia [None]
  - Blood creatinine increased [None]
  - Blood urea increased [None]
